FAERS Safety Report 25706350 (Version 1)
Quarter: 2025Q3

REPORT INFORMATION
  Report Type: Spontaneous
  Country: US (occurrence: US)
  Receive Date: 20250820
  Receipt Date: 20250820
  Transmission Date: 20251021
  Serious: No
  Sender: CATALYST PHARMA
  Company Number: US-CATALYST PHARMACEUTICALS-US-CATA-25-00676

PATIENT
  Age: 5 Year
  Sex: Male
  Weight: 17.234 kg

DRUGS (4)
  1. AGAMREE [Suspect]
     Active Substance: VAMOROLONE
     Indication: Duchenne muscular dystrophy
     Dosage: 2 ML DAILY
     Route: 048
     Dates: start: 20240917
  2. VITAMIN D3 [Concomitant]
     Active Substance: CHOLECALCIFEROL
     Indication: Bone disorder
     Route: 065
  3. VITAMIN D3 [Concomitant]
     Active Substance: CHOLECALCIFEROL
     Indication: Prophylaxis
     Dosage: 2000 UNITS DAILY
     Route: 065
  4. MELATONIN [Concomitant]
     Active Substance: MELATONIN
     Indication: Insomnia
     Dosage: 1MG AT BEDTIME
     Route: 065

REACTIONS (8)
  - Aspartate aminotransferase increased [Unknown]
  - Alanine aminotransferase increased [Unknown]
  - Platelet count increased [Unknown]
  - Pain in extremity [Unknown]
  - Pain in extremity [Not Recovered/Not Resolved]
  - Peripheral swelling [Unknown]
  - Blood glucose increased [Unknown]
  - Bone density decreased [Unknown]

NARRATIVE: CASE EVENT DATE: 20250409
